FAERS Safety Report 4411241-1 (Version None)
Quarter: 2004Q3

REPORT INFORMATION
  Report Type: 
  Country: None (occurrence: None)
  Receive Date: 20040727
  Receipt Date: 20040713
  Transmission Date: 20050211
  Serious: Yes (Hospitalization)
  Sender: FDA-Public Use
  Company Number: B0339623A

PATIENT
  Age: 31 Year
  Sex: Male

DRUGS (1)
  1. PAXIL [Suspect]
     Dosage: 200 MG / PER DAY

REACTIONS (8)
  - ADJUSTMENT DISORDER [None]
  - CARDIAC MURMUR [None]
  - CEREBRAL ARTERY OCCLUSION [None]
  - CEREBRAL INFARCTION [None]
  - ISCHAEMIC STROKE [None]
  - MITRAL VALVE DISEASE [None]
  - THROMBOEMBOLIC STROKE [None]
  - THROMBOSIS [None]
